FAERS Safety Report 8734448 (Version 2)
Quarter: 2013Q1

REPORT INFORMATION
  Report Type: Spontaneous
  Country: US (occurrence: US)
  Receive Date: 20120821
  Receipt Date: 20130130
  Transmission Date: 20140127
  Serious: Yes (Other)
  Sender: FDA-Public Use
  Company Number: US-GLAXOSMITHKLINE-A0981005A

PATIENT
  Age: 31 Year
  Sex: Female
  Weight: 66.8 kg

DRUGS (7)
  1. VALTREX [Suspect]
     Indication: PRODUCT USED FOR UNKNOWN INDICATION
     Dosage: 500MG UNKNOWN
  2. DILAUDID [Concomitant]
     Indication: MUSCLE SPASMS
     Dates: start: 20120412
  3. FLAGYL [Concomitant]
     Indication: VAGINITIS BACTERIAL
     Dosage: 500MG THREE TIMES PER DAY
     Dates: start: 20120412
  4. DIFLUCAN [Concomitant]
     Indication: FUNGAL INFECTION
     Dosage: 200MG SINGLE DOSE
  5. RHOGAM [Concomitant]
     Dates: start: 20120611
  6. CLEOCIN [Concomitant]
     Indication: CERVICITIS
  7. FERTILITY TREATMENT [Concomitant]

REACTIONS (2)
  - Abortion spontaneous [Unknown]
  - Exposure during pregnancy [Unknown]
